FAERS Safety Report 10110212 (Version 3)
Quarter: 2014Q3

REPORT INFORMATION
  Report Type: Spontaneous
  Country: US (occurrence: US)
  Receive Date: 20140425
  Receipt Date: 20140709
  Transmission Date: 20150326
  Serious: Yes (Other)
  Sender: FDA-Public Use
  Company Number: US-BAYER-2014-056428

PATIENT
  Age: 49 Year
  Sex: Male

DRUGS (2)
  1. STIVARGA [Suspect]
     Active Substance: REGORAFENIB
     Indication: COLON CANCER
     Dosage: DAILY DOSE 120 MG
     Route: 048
     Dates: end: 20140629
  2. STIVARGA [Suspect]
     Active Substance: REGORAFENIB
     Indication: COLON CANCER
     Dosage: 160 MG, QD X 21D
     Route: 048
     Dates: start: 20140124

REACTIONS (7)
  - Colon cancer [None]
  - Medication residue present [None]
  - Gastrointestinal stoma complication [None]
  - Abdominal pain [None]
  - Medication residue present [None]
  - Chromaturia [None]
  - Gastrointestinal stoma complication [None]

NARRATIVE: CASE EVENT DATE: 2014
